FAERS Safety Report 7924228 (Version 3)
Quarter: 2013Q4

REPORT INFORMATION
  Report Type: Spontaneous
  Country: US (occurrence: US)
  Receive Date: 20110502
  Receipt Date: 20131126
  Transmission Date: 20140711
  Serious: Yes (Hospitalization)
  Sender: FDA-Public Use
  Company Number: US-BAYER-2011-036825

PATIENT
  Age: 45 Year
  Sex: Female
  Weight: 44.44 kg

DRUGS (10)
  1. YASMIN [Suspect]
     Indication: PRODUCT USED FOR UNKNOWN INDICATION
     Dosage: UNK UNK, QD
     Route: 048
     Dates: start: 2001, end: 2009
  2. OCELLA [Suspect]
     Dosage: UNK
     Dates: start: 2001, end: 2009
  3. ADVIL [Concomitant]
  4. LIPITOR [Concomitant]
     Indication: BLOOD CHOLESTEROL INCREASED
     Dosage: UNK
     Dates: start: 1998, end: 2005
  5. ZETIA [Concomitant]
     Indication: BLOOD CHOLESTEROL INCREASED
     Dosage: UNK
     Dates: start: 2005, end: 2009
  6. ALPRAZOLAM [Concomitant]
     Dosage: 0.25 MG, UNK
  7. CIPROFLOXACIN [Concomitant]
     Dosage: 500 MG, BID
  8. PREVACID [Concomitant]
     Dosage: 30 MG, UNK
  9. LEVAQUIN [Concomitant]
     Dosage: 500 MG, UNK
  10. METRONIDAZOLE [Concomitant]
     Dosage: 500 MG, UNK

REACTIONS (5)
  - Pancreatitis [None]
  - Cholecystectomy [None]
  - Cholelithiasis [None]
  - Pain [None]
  - Injury [None]
